FAERS Safety Report 6051695-0 (Version None)
Quarter: 2009Q1

REPORT INFORMATION
  Report Type: 
  Country: None (occurrence: None)
  Receive Date: 20090126
  Receipt Date: 20090112
  Transmission Date: 20090719
  Serious: Yes (Death)
  Sender: FDA-Public Use
  Company Number: DE-BRISTOL-MYERS SQUIBB COMPANY-14471023

PATIENT
  Age: 64 Year
  Sex: Female
  Weight: 52 kg

DRUGS (2)
  1. ERBITUX [Suspect]
     Indication: COLORECTAL CANCER METASTATIC
     Dosage: (LOADING DOSE 500 MG/M2)ALSO RECD 20-AUG-08, MOST RECENT INFUSION WAS 24-SEP-2008 (DURATION 35 DAYS)
     Route: 042
     Dates: start: 20080814, end: 20080924
  2. IRINOTECAN HCL [Suspect]
     Indication: COLORECTAL CANCER METASTATIC
     Route: 042
     Dates: start: 20080814

REACTIONS (1)
  - CEREBRAL HAEMORRHAGE [None]
